FAERS Safety Report 6734731-5 (Version None)
Quarter: 2010Q2

REPORT INFORMATION
  Report Type: 
  Country: None (occurrence: None)
  Receive Date: 20100518
  Receipt Date: 20100518
  Transmission Date: 20101027
  Serious: No
  Sender: FDA-Public Use
  Company Number: None

PATIENT
  Age: 57 Year
  Sex: Male
  Weight: 64.4108 kg

DRUGS (1)
  1. TESTIM [Suspect]
     Indication: PRIMARY HYPOGONADISM
     Dosage: 10 GM Q DAILY TOP
     Route: 061
     Dates: start: 20100219, end: 20100326

REACTIONS (1)
  - PRODUCT QUALITY ISSUE [None]
